FAERS Safety Report 10550242 (Version 1)
Quarter: 2014Q4

REPORT INFORMATION
  Report Type: Report from Study
  Country: US (occurrence: US)
  Receive Date: 20141028
  Receipt Date: 20141028
  Transmission Date: 20150529
  Serious: Yes (Death, Hospitalization)
  Sender: FDA-Public Use
  Company Number: US-ABBVIE-14K-163-1300269-00

PATIENT
  Sex: Female

DRUGS (1)
  1. HUMIRA [Suspect]
     Active Substance: ADALIMUMAB
     Indication: CROHN^S DISEASE
     Route: 058
     Dates: start: 2010, end: 201307

REACTIONS (3)
  - White blood cell count increased [Recovered/Resolved]
  - Lung cancer metastatic [Fatal]
  - Infection [Recovered/Resolved]

NARRATIVE: CASE EVENT DATE: 2013
